FAERS Safety Report 6589477-3 (Version None)
Quarter: 2010Q1

REPORT INFORMATION
  Report Type: 
  Country: None (occurrence: None)
  Receive Date: 20100212
  Receipt Date: 20100126
  Transmission Date: 20100710
  Serious: Yes (Hospitalization)
  Sender: FDA-Public Use
  Company Number: 005510

PATIENT
  Sex: Male

DRUGS (1)
  1. KEPPRA [Suspect]
     Indication: EPILEPSY
     Dosage: (1500 MG ORAL)
     Route: 048

REACTIONS (3)
  - DRUG TOXICITY [None]
  - HEPATIC CIRRHOSIS [None]
  - PORTAL HYPERTENSION [None]
